FAERS Safety Report 16985751 (Version 1)
Quarter: 2019Q4

REPORT INFORMATION
  Report Type: Report from Study
  Country: IT (occurrence: IT)
  Receive Date: 20191101
  Receipt Date: 20191101
  Transmission Date: 20200122
  Serious: Yes (Hospitalization)
  Sender: FDA-Public Use
  Company Number: IT-PFIZER INC-2019466604

PATIENT
  Age: 31 Year
  Sex: Female

DRUGS (3)
  1. TACHIPIRINA [Suspect]
     Active Substance: ACETAMINOPHEN
     Dosage: 12 G, SINGLE
     Route: 048
  2. AMLODIPINE BESILATE [Suspect]
     Active Substance: AMLODIPINE BESYLATE
  3. INEGY [Suspect]
     Active Substance: EZETIMIBE\SIMVASTATIN

REACTIONS (2)
  - Toxicity to various agents [Recovering/Resolving]
  - Loss of consciousness [Recovering/Resolving]

NARRATIVE: CASE EVENT DATE: 20190815
